FAERS Safety Report 6581357-2 (Version None)
Quarter: 2010Q1

REPORT INFORMATION
  Report Type: 
  Country: None (occurrence: None)
  Receive Date: 20100215
  Receipt Date: 20100208
  Transmission Date: 20100710
  Serious: Yes (Other)
  Sender: FDA-Public Use
  Company Number: B0629966A

PATIENT
  Sex: Female

DRUGS (1)
  1. ALLI [Suspect]
     Dosage: 1CAP THREE TIMES PER DAY
     Route: 048
     Dates: start: 20100104, end: 20100109

REACTIONS (9)
  - ABDOMINAL PAIN UPPER [None]
  - BLOOD URINE PRESENT [None]
  - FREQUENT BOWEL MOVEMENTS [None]
  - HAEMORRHAGE [None]
  - HYPERHIDROSIS [None]
  - MALAISE [None]
  - PAIN [None]
  - STEATORRHOEA [None]
  - SYNCOPE [None]
